FAERS Safety Report 6033822-4 (Version None)
Quarter: 2009Q1

REPORT INFORMATION
  Report Type: 
  Country: None (occurrence: None)
  Receive Date: 20090112
  Receipt Date: 20090105
  Transmission Date: 20090719
  Serious: Yes (Other)
  Sender: FDA-Public Use
  Company Number: CH-JNJFOC-20090100377

PATIENT
  Age: 28 Year
  Sex: Male
  Weight: 76 kg

DRUGS (3)
  1. TOPAMAX [Suspect]
     Route: 048
  2. TOPAMAX [Suspect]
     Indication: GRAND MAL CONVULSION
     Route: 048
  3. KEPPRA [Concomitant]
     Indication: GRAND MAL CONVULSION
     Route: 048

REACTIONS (1)
  - PANIC REACTION [None]
